FAERS Safety Report 20451111 (Version 1)
Quarter: 2022Q1

REPORT INFORMATION
  Report Type: Spontaneous
  Country: GB (occurrence: GB)
  Receive Date: 20220209
  Receipt Date: 20220209
  Transmission Date: 20220423
  Serious: Yes (Other)
  Sender: FDA-Public Use
  Company Number: GB-Eisai Europe Ltd-EC-2021-104197

PATIENT
  Age: 62 Year
  Sex: Male

DRUGS (3)
  1. EVEROLIMUS [Suspect]
     Active Substance: EVEROLIMUS
     Indication: Renal cell carcinoma
     Dosage: 5 MILLIGRAM
     Route: 065
     Dates: start: 202004
  2. LENVIMA [Suspect]
     Active Substance: LENVATINIB
     Indication: Renal cell carcinoma
     Dosage: 18 MILLIGRAM, QD
     Route: 048
     Dates: start: 202004, end: 20200813
  3. LENVIMA [Suspect]
     Active Substance: LENVATINIB
     Dosage: 14 MILLIGRAM, QD
     Route: 048
     Dates: start: 20200814

REACTIONS (9)
  - Anal abscess [Recovered/Resolved]
  - Lethargy [Unknown]
  - Pain [Unknown]
  - Gastritis [Recovering/Resolving]
  - Blood calcium decreased [Unknown]
  - Hypertension [Unknown]
  - Fatigue [Unknown]
  - Stomatitis [Unknown]
  - Rash [Unknown]

NARRATIVE: CASE EVENT DATE: 20200101
